FAERS Safety Report 13052080 (Version 1)
Quarter: 2016Q4

REPORT INFORMATION
  Report Type: Report from Study
  Country: CN (occurrence: CN)
  Receive Date: 20161221
  Receipt Date: 20161221
  Transmission Date: 20170207
  Serious: Yes (Hospitalization)
  Sender: FDA-Public Use
  Company Number: CN-ASTRAZENECA-2016SF32275

PATIENT
  Age: 22608 Day
  Sex: Male

DRUGS (32)
  1. TAGRISSO [Suspect]
     Active Substance: OSIMERTINIB
     Indication: NON-SMALL CELL LUNG CANCER METASTATIC
     Route: 048
     Dates: start: 20160922
  2. ZOLEDRONIC ACID [Concomitant]
     Active Substance: ZOLEDRONIC ACID
     Indication: PROPHYLAXIS
     Route: 042
     Dates: start: 20151112
  3. ZOLEDRONIC ACID [Concomitant]
     Active Substance: ZOLEDRONIC ACID
     Indication: PROPHYLAXIS
     Route: 042
     Dates: start: 20160112
  4. ZOLEDRONIC ACID [Concomitant]
     Active Substance: ZOLEDRONIC ACID
     Indication: PROPHYLAXIS
     Route: 042
     Dates: start: 20160214
  5. SODIUM BICARBONATE. [Concomitant]
     Active Substance: SODIUM BICARBONATE
     Indication: BENIGN PROSTATIC HYPERPLASIA
     Dosage: 6.0 TABLET TID
     Route: 048
     Dates: start: 20160105
  6. ZOLEDRONIC ACID [Concomitant]
     Active Substance: ZOLEDRONIC ACID
     Indication: PROPHYLAXIS
     Route: 042
     Dates: start: 20160414
  7. ZOLEDRONIC ACID [Concomitant]
     Active Substance: ZOLEDRONIC ACID
     Indication: PROPHYLAXIS
     Route: 042
     Dates: start: 20160614
  8. ZOMETA [Concomitant]
     Active Substance: ZOLEDRONIC ACID
     Indication: PROPHYLAXIS
     Dosage: 4.0 MG ONCE
     Route: 042
     Dates: start: 20151014
  9. AMBROXOL HYDROCHLORIDE [Concomitant]
     Active Substance: AMBROXOL HYDROCHLORIDE
     Indication: DYSPNOEA
     Dosage: 3.0 TABLET TID
     Route: 048
     Dates: start: 20161102
  10. TAGRISSO [Suspect]
     Active Substance: OSIMERTINIB
     Indication: NON-SMALL CELL LUNG CANCER METASTATIC
     Route: 048
     Dates: start: 20160824
  11. TAGRISSO [Suspect]
     Active Substance: OSIMERTINIB
     Indication: NON-SMALL CELL LUNG CANCER METASTATIC
     Route: 048
     Dates: start: 20161017
  12. LOQUAT [Concomitant]
     Indication: COUGH
     Route: 048
     Dates: start: 20140207
  13. SALMETEROL XINAFOATE AND FLUTICASONE PROPIONATE POWDER FOR INHALATION [Concomitant]
     Indication: DYSPNOEA
     Dosage: 2.0 PUFF BID
     Route: 055
     Dates: start: 20161102
  14. CENTRUM [Concomitant]
     Active Substance: VITAMINS
     Indication: VITAMIN SUPPLEMENTATION
     Dosage: 1 TABLET,DAILY
     Route: 048
     Dates: start: 20130101
  15. ZOLEDRONIC ACID [Concomitant]
     Active Substance: ZOLEDRONIC ACID
     Indication: PROPHYLAXIS
     Route: 042
     Dates: start: 20160313
  16. CEFDINIR CAPSULES [Concomitant]
     Indication: BENIGN PROSTATIC HYPERPLASIA
     Dosage: 3.0 TABLET TID
     Route: 048
     Dates: start: 20160105
  17. TAGRISSO [Suspect]
     Active Substance: OSIMERTINIB
     Indication: NON-SMALL CELL LUNG CANCER METASTATIC
     Route: 048
     Dates: start: 20151027
  18. TAGRISSO [Suspect]
     Active Substance: OSIMERTINIB
     Indication: NON-SMALL CELL LUNG CANCER METASTATIC
     Route: 048
     Dates: start: 20160719
  19. ZOLEDRONIC ACID [Concomitant]
     Active Substance: ZOLEDRONIC ACID
     Indication: PROPHYLAXIS
     Route: 042
     Dates: start: 20160911
  20. COATED ALDEHYDE OXYSTARCH [Concomitant]
     Indication: BLOOD CREATININE DECREASED
     Dosage: 18.0 CAPSULE TID
     Route: 048
     Dates: start: 20160804
  21. MEDICAL CHARCOAL [Concomitant]
     Indication: BLOOD CREATININE DECREASED
     Dosage: ORAL 9.0 TABLET TID
     Route: 048
     Dates: start: 20160707
  22. CALTRATE(CALCIUM CARBONATE) [Concomitant]
     Indication: MINERAL SUPPLEMENTATION
     Dosage: 1 TABLET,DAILY
     Route: 048
     Dates: start: 20130101
  23. ZOLEDRONIC ACID [Concomitant]
     Active Substance: ZOLEDRONIC ACID
     Indication: PROPHYLAXIS
     Route: 042
     Dates: start: 20151212
  24. ZOLEDRONIC ACID [Concomitant]
     Active Substance: ZOLEDRONIC ACID
     Indication: PROPHYLAXIS
     Route: 042
     Dates: start: 20160514
  25. RELINQING GRANULES [Concomitant]
     Indication: BENIGN PROSTATIC HYPERPLASIA
     Dosage: 2.0 OTHER BAG BID
     Route: 048
     Dates: start: 20160105
  26. THEO-DUR [Concomitant]
     Active Substance: THEOPHYLLINE ANHYDROUS
     Indication: DYSPNOEA
     Dosage: 2.0 TABLET BID
     Route: 048
     Dates: start: 20161030
  27. SALMETEROL XINAFOATE AND FLUTICASONE PROPIONATE POWDER FOR INHALATION [Concomitant]
     Indication: DYSPNOEA
     Dosage: 2.0 PUFF BID
     Route: 055
     Dates: start: 20161031
  28. TAGRISSO [Suspect]
     Active Substance: OSIMERTINIB
     Indication: NON-SMALL CELL LUNG CANCER METASTATIC
     Route: 048
     Dates: start: 20160815
  29. SUGAR-FREE SEABUCKTHORN [Concomitant]
     Indication: COUGH
     Dosage: AS REQUIRED
     Route: 048
     Dates: start: 20150911
  30. ZOLEDRONIC ACID [Concomitant]
     Active Substance: ZOLEDRONIC ACID
     Indication: PROPHYLAXIS
     Route: 042
     Dates: start: 20160816
  31. PIPERAZINE FERULATE [Concomitant]
     Indication: BLOOD CREATININE DECREASED
     Dosage: 12.0 TABLET TID
     Route: 048
     Dates: start: 20160707
  32. AMBROXOL HYDROCHLORIDE [Concomitant]
     Active Substance: AMBROXOL HYDROCHLORIDE
     Indication: DYSPNOEA
     Dosage: 3.0 TABLET TID
     Route: 048
     Dates: start: 20161031

REACTIONS (1)
  - Dyspnoea [Not Recovered/Not Resolved]

NARRATIVE: CASE EVENT DATE: 20161213
